FAERS Safety Report 23518507 (Version 1)
Quarter: 2024Q1

REPORT INFORMATION
  Report Type: Spontaneous
  Country: FR (occurrence: FR)
  Receive Date: 20240213
  Receipt Date: 20240213
  Transmission Date: 20240409
  Serious: Yes (Hospitalization)
  Sender: FDA-Public Use
  Company Number: FR-SUN PHARMACEUTICAL INDUSTRIES LTD-2024RR-430974

PATIENT
  Age: 23 Year
  Sex: Female
  Weight: 48 kg

DRUGS (2)
  1. METOPROLOL [Suspect]
     Active Substance: METOPROLOL
     Indication: Product used for unknown indication
     Dosage: 40 MILLIGRAM, IN TOTAL, 10 MG X 4 TAB
     Route: 048
     Dates: start: 20231218, end: 20231218
  2. DIAZEPAM [Suspect]
     Active Substance: DIAZEPAM
     Indication: Product used for unknown indication
     Dosage: 200 MILLIGRAM, IN TOTAL, 10 MG X 20 TAB
     Route: 048
     Dates: start: 20231218, end: 20231218

REACTIONS (5)
  - Poisoning deliberate [Recovered/Resolved]
  - Dysarthria [Unknown]
  - Dysarthria [Unknown]
  - Bradycardia [Unknown]
  - Hypotension [Unknown]
